FAERS Safety Report 11173225 (Version 2)
Quarter: 2015Q3

REPORT INFORMATION
  Report Type: Spontaneous
  Country: US (occurrence: US)
  Receive Date: 20150608
  Receipt Date: 20150928
  Transmission Date: 20151125
  Serious: No
  Sender: FDA-Public Use
  Company Number: US-GLAXOSMITHKLINE-US2015078018

PATIENT
  Sex: Female

DRUGS (15)
  1. CEPHALEXIN. [Concomitant]
     Active Substance: CEPHALEXIN
  2. DULOXETINE. [Concomitant]
     Active Substance: DULOXETINE
  3. LISINOPRIL. [Concomitant]
     Active Substance: LISINOPRIL
  4. PIOGLITAZONE. [Concomitant]
     Active Substance: PIOGLITAZONE
  5. TANZEUM [Suspect]
     Active Substance: ALBIGLUTIDE
     Indication: TYPE 2 DIABETES MELLITUS
     Dosage: 30 MG, WE
     Route: 058
  6. LANTUS [Concomitant]
     Active Substance: INSULIN GLARGINE
  7. ATORVASTATIN [Concomitant]
     Active Substance: ATORVASTATIN
  8. BUPROPION. [Concomitant]
     Active Substance: BUPROPION
  9. LEVOTHYROXINE. [Concomitant]
     Active Substance: LEVOTHYROXINE
  10. MELOXICAM. [Concomitant]
     Active Substance: MELOXICAM
  11. TRAMADOL. [Concomitant]
     Active Substance: TRAMADOL
  12. LYRICA [Concomitant]
     Active Substance: PREGABALIN
  13. GEMFIBROZIL. [Concomitant]
     Active Substance: GEMFIBROZIL
  14. QVAR [Concomitant]
     Active Substance: BECLOMETHASONE DIPROPIONATE
  15. OMEPRAZOLE. [Concomitant]
     Active Substance: OMEPRAZOLE

REACTIONS (3)
  - Contusion [Not Recovered/Not Resolved]
  - Scratch [Unknown]
  - Pruritus [Not Recovered/Not Resolved]
